FAERS Safety Report 10628167 (Version 1)
Quarter: 2014Q4

REPORT INFORMATION
  Report Type: Spontaneous
  Country: US (occurrence: US)
  Receive Date: 20141205
  Receipt Date: 20141205
  Transmission Date: 20150529
  Serious: Yes (Hospitalization)
  Sender: FDA-Public Use
  Company Number: US-BRISTOL-MYERS SQUIBB COMPANY-20977609

PATIENT
  Age: 65 Year
  Sex: Male
  Weight: 74.37 kg

DRUGS (1)
  1. ERBITUX [Suspect]
     Active Substance: CETUXIMAB
     Indication: THROAT CANCER

REACTIONS (3)
  - Dermatitis acneiform [Unknown]
  - Pain [Unknown]
  - Skin burning sensation [Unknown]
